FAERS Safety Report 5799720-6 (Version None)
Quarter: 2008Q3

REPORT INFORMATION
  Report Type: 
  Country: None (occurrence: None)
  Receive Date: 20080703
  Receipt Date: 20080623
  Transmission Date: 20090109
  Serious: Yes (Hospitalization)
  Sender: FDA-Public Use
  Company Number: PHHO2008JP05022

PATIENT
  Sex: Female

DRUGS (1)
  1. CGS 20267 T30748+TAB [Suspect]
     Dosage: 2.5 MG, QD
     Route: 048
     Dates: start: 20070730

REACTIONS (4)
  - FALL [None]
  - FEMORAL NECK FRACTURE [None]
  - FRACTURE TREATMENT [None]
  - REHABILITATION THERAPY [None]
